FAERS Safety Report 26145096 (Version 2)
Quarter: 2025Q4

REPORT INFORMATION
  Report Type: Spontaneous
  Country: GB (occurrence: GB)
  Receive Date: 20251211
  Receipt Date: 20251222
  Transmission Date: 20260118
  Serious: Yes (Hospitalization, Other)
  Sender: TEVA
  Company Number: GB-TEVA-VS-3400141

PATIENT
  Age: 33 Year
  Sex: Male

DRUGS (3)
  1. CYCLOSPORINE [Suspect]
     Active Substance: CYCLOSPORINE
     Indication: Dermatitis atopic
     Route: 065
  2. DUPILUMAB [Suspect]
     Active Substance: DUPILUMAB
     Indication: Dermatitis atopic
     Route: 065
  3. IVERMECTIN [Concomitant]
     Active Substance: IVERMECTIN
     Indication: Strongyloidiasis
     Route: 065

REACTIONS (3)
  - Hypereosinophilic syndrome [Recovering/Resolving]
  - Drug ineffective [Unknown]
  - Colitis [Recovering/Resolving]
